FAERS Safety Report 5340391-0 (Version None)
Quarter: 2007Q2

REPORT INFORMATION
  Report Type: 
  Country: None (occurrence: None)
  Receive Date: 20070405
  Receipt Date: 20061227
  Transmission Date: 20071010
  Serious: No
  Sender: FDA-Public Use
  Company Number: US200612004411

PATIENT
  Age: 54 Year
  Sex: Female

DRUGS (5)
  1. CYMBALTA [Suspect]
     Dosage: SEE IMAGE
     Dates: start: 20050101
  2. ANTIHYPERTENSIVES [Concomitant]
  3. NEXIUM [Concomitant]
  4. ADDERALL (AMFETAMINE ASPARTATE, AMFETAMINE SULFATE, DEXAMFETAMINE SACC [Concomitant]
  5. LORAZEPAM [Concomitant]

REACTIONS (1)
  - CRYING [None]
